FAERS Safety Report 8032099-8 (Version None)
Quarter: 2012Q1

REPORT INFORMATION
  Report Type: 
  Country: None (occurrence: None)
  Receive Date: 20120109
  Receipt Date: 20120105
  Transmission Date: 20120608
  Serious: Yes (Life-Threatening)
  Sender: FDA-Public Use
  Company Number: GB-ASTRAZENECA-2012SE00851

PATIENT
  Age: 59 Year
  Sex: Female
  Weight: 104.8 kg

DRUGS (23)
  1. ACETAMINOPHEN AND CODEINE PHOSPHATE [Concomitant]
     Dates: start: 20110705
  2. NICOTINE [Concomitant]
     Dates: start: 20110928, end: 20111012
  3. PREDNISOLONE [Interacting]
     Dates: start: 20110816
  4. BENDROFLUMETHIAZIDE [Concomitant]
     Dates: start: 20110705, end: 20110823
  5. CETIRIZINE HCL [Concomitant]
     Dates: start: 20110705
  6. ERYTHROMYCIN [Concomitant]
     Dates: start: 20111014
  7. ESTRADIOL VALERATE [Concomitant]
     Dates: start: 20111011
  8. FLUTICASONE FUROATE [Concomitant]
     Dates: start: 20110705
  9. THEOPHYLLINE [Concomitant]
     Dates: start: 20111011
  10. FUCIDINE CAP [Concomitant]
     Dates: start: 20111014
  11. EPIPEN [Concomitant]
     Dates: start: 20110927, end: 20110928
  12. FUROSEMIDE [Concomitant]
     Dates: start: 20110705
  13. AMOXICILLIN [Interacting]
     Dates: start: 20110816
  14. ESTRADIOL VALERATE [Concomitant]
     Dates: start: 20110706, end: 20110928
  15. FLUCONAZOLE [Concomitant]
     Dates: start: 20110816
  16. TIOPRONIN [Concomitant]
     Dates: start: 20110705
  17. VENTOLIN [Concomitant]
     Dates: start: 20111011
  18. AMLODIPINE [Concomitant]
     Dates: start: 20111012
  19. EPIPEN [Concomitant]
     Dates: start: 20111011, end: 20111012
  20. FLUOXETINE [Concomitant]
     Dates: start: 20110705
  21. OMEPRAZOLE [Concomitant]
     Dates: start: 20110705
  22. LISINOPRIL [Suspect]
     Route: 048
     Dates: start: 20101101
  23. NICOTINE [Concomitant]
     Dates: start: 20110927, end: 20111004

REACTIONS (2)
  - DRUG INTERACTION [None]
  - ANAPHYLACTIC REACTION [None]
